FAERS Safety Report 4903070-7 (Version None)
Quarter: 2006Q1

REPORT INFORMATION
  Report Type: 
  Country: None (occurrence: None)
  Receive Date: 20060207
  Receipt Date: 20060127
  Transmission Date: 20060701
  Serious: Yes (Hospitalization, Other)
  Sender: FDA-Public Use
  Company Number: US-JNJFOC-20051200131

PATIENT
  Sex: Female
  Weight: 45.81 kg

DRUGS (28)
  1. REMICADE [Suspect]
     Route: 042
     Dates: start: 20010322
  2. REMICADE [Suspect]
     Route: 042
     Dates: start: 20010322
  3. REMICADE [Suspect]
     Route: 042
     Dates: start: 20010322
  4. REMICADE [Suspect]
     Indication: RHEUMATOID ARTHRITIS
     Route: 042
     Dates: start: 20010322
  5. CARDIZEM CD [Concomitant]
  6. PREDNISONE [Concomitant]
  7. ASPIRIN [Concomitant]
  8. LIPITOR [Concomitant]
  9. IMURAN [Concomitant]
  10. POTASSIUM CHLORIDE [Concomitant]
  11. ZANTAC [Concomitant]
  12. ATENOLOL [Concomitant]
  13. COMBIVENT [Concomitant]
  14. COMBIVENT [Concomitant]
     Dosage: TWO PUFFS TWICE A DAY
  15. ADVAIR INHALER [Concomitant]
  16. ADVAIR INHALER [Concomitant]
     Dosage: DOSAGE:  500/50 TWICE A DAY
  17. LASIX [Concomitant]
  18. HYDROCODONE BITARTRATE [Concomitant]
     Dosage: EVERY SIX HOURS
  19. MUCINEX [Concomitant]
  20. MULTIVITAMIN WITH IRON [Concomitant]
  21. CALCIUM GLUCONATE [Concomitant]
  22. IRON [Concomitant]
     Dosage: DAILY
  23. CALCIUM AND VITAMIN D [Concomitant]
  24. CALCIUM AND VITAMIN D [Concomitant]
  25. CALCIUM AND VITAMIN D [Concomitant]
  26. CALCIUM AND VITAMIN D [Concomitant]
  27. CALCIUM AND VITAMIN D [Concomitant]
  28. COLACE [Concomitant]

REACTIONS (17)
  - ANAEMIA [None]
  - ARTERIOSCLEROSIS CORONARY ARTERY [None]
  - BILIARY DILATATION [None]
  - CHRONIC OBSTRUCTIVE PULMONARY DISEASE [None]
  - CONSTIPATION [None]
  - DYSPHAGIA [None]
  - GRANULOMA [None]
  - LUNG SQUAMOUS CELL CARCINOMA STAGE II [None]
  - MACULAR DEGENERATION [None]
  - MYOCARDIAL INFARCTION [None]
  - OSTEOARTHRITIS [None]
  - PEPTIC ULCER [None]
  - PNEUMONIA [None]
  - PNEUMONITIS [None]
  - RESPIRATORY DISTRESS [None]
  - SMALL INTESTINAL OBSTRUCTION [None]
  - THERAPEUTIC RESPONSE DECREASED [None]
